FAERS Safety Report 18308829 (Version 1)
Quarter: 2020Q3

REPORT INFORMATION
  Report Type: Spontaneous
  Country: US (occurrence: US)
  Receive Date: 20200924
  Receipt Date: 20200924
  Transmission Date: 20201103
  Serious: Yes (Other)
  Sender: FDA-Public Use
  Company Number: US-ASTRAZENECA-2020SF20813

PATIENT
  Sex: Female

DRUGS (4)
  1. PREDNISONE. [Suspect]
     Active Substance: PREDNISONE
     Route: 065
  2. NUCALA [Concomitant]
     Active Substance: MEPOLIZUMAB
  3. FASENRA [Suspect]
     Active Substance: BENRALIZUMAB
     Dosage: UNKNOWN
     Route: 058
  4. HYDROCORTISONE. [Concomitant]
     Active Substance: HYDROCORTISONE

REACTIONS (7)
  - Stress [Unknown]
  - Pain [Unknown]
  - Nightmare [Unknown]
  - Asthma [Unknown]
  - Drug ineffective [Unknown]
  - Multiple fractures [Unknown]
  - Productive cough [Unknown]
